FAERS Safety Report 9647636 (Version 1)
Quarter: 2013Q4

REPORT INFORMATION
  Report Type: Spontaneous
  Country: US (occurrence: US)
  Receive Date: 20131028
  Receipt Date: 20131028
  Transmission Date: 20140711
  Serious: No
  Sender: FDA-Public Use
  Company Number: US-B.I. PHARMACEUTICALS,INC./RIDGEFIELD-2013-BI-32881BP

PATIENT
  Age: 63 Year
  Sex: Male
  Weight: 82 kg

DRUGS (6)
  1. SPIRIVA [Suspect]
     Indication: CHRONIC OBSTRUCTIVE PULMONARY DISEASE
     Dosage: 18 MCG
     Route: 055
     Dates: start: 201303
  2. VERAPAMIL [Concomitant]
     Indication: HYPERTENSION
     Dosage: 360 MG
     Route: 048
     Dates: start: 2012
  3. LISINOPRIL [Concomitant]
     Indication: HYPERTENSION
     Dosage: 20 MG
     Route: 048
     Dates: start: 2012
  4. RHINOCORT [Concomitant]
     Indication: HYPERSENSITIVITY
     Dosage: INHALATION SPRAY STRENGTH: 1 SPRAY; DAILY DOSE: 4 SPRAYS
     Route: 045
     Dates: start: 2012
  5. SYMBICORT [Concomitant]
     Indication: CHRONIC OBSTRUCTIVE PULMONARY DISEASE
     Dosage: INHALATION SOLUTION, STRENGTH: 1 SPRAY; DAILY DOSE: 4 SPAYS
     Route: 055
     Dates: start: 2012
  6. ASPIRIN [Concomitant]
     Indication: CEREBROVASCULAR ACCIDENT PROPHYLAXIS
     Dosage: 81 MG
     Route: 048
     Dates: start: 201303, end: 201304

REACTIONS (1)
  - Contusion [Not Recovered/Not Resolved]
